FAERS Safety Report 6359317 (Version 2)
Quarter: 2016Q4

REPORT INFORMATION
  Report Type: Spontaneous
  Country: GB (occurrence: GB)
  Receive Date: 20070717
  Receipt Date: 20161007
  Transmission Date: 20170207
  Serious: Yes (Other)
  Sender: FDA-Public Use
  Company Number: GB-BAUSCH-2007BL002260

PATIENT
  Age: 71 Year
  Sex: Female

DRUGS (11)
  1. BETAMETHASONE. [Suspect]
     Active Substance: BETAMETHASONE
     Indication: POSTOPERATIVE CARE
     Route: 047
     Dates: start: 20070501, end: 20070501
  2. NEOMYCIN [Suspect]
     Active Substance: NEOMYCIN
     Indication: POSTOPERATIVE CARE
     Route: 047
     Dates: start: 20070501, end: 20070501
  3. CYCLOPENTOLATE. [Suspect]
     Active Substance: CYCLOPENTOLATE
     Indication: PREOPERATIVE CARE
     Route: 047
     Dates: start: 20070501, end: 20070501
  4. HYALURONATE SODIUM [Suspect]
     Active Substance: HYALURONATE SODIUM
     Route: 047
     Dates: start: 20070501, end: 20070501
  5. OCUFEN [Suspect]
     Active Substance: FLURBIPROFEN SODIUM
     Indication: PREOPERATIVE CARE
     Route: 047
     Dates: start: 20070501, end: 20070501
  6. PHENYLEPHRINE [Suspect]
     Active Substance: PHENYLEPHRINE\PHENYLEPHRINE HYDROCHLORIDE
     Indication: CATARACT OPERATION
     Route: 047
     Dates: start: 20070501, end: 20070501
  7. ADRENALINE [Suspect]
     Active Substance: EPINEPHRINE
     Indication: EYE IRRIGATION
     Route: 047
     Dates: start: 20070501, end: 20070501
  8. CHLORAMPHENICOL [Suspect]
     Active Substance: CHLORAMPHENICOL
     Indication: CATARACT OPERATION
     Route: 047
     Dates: start: 20070501, end: 20070501
  9. LIDOCAINE. [Suspect]
     Active Substance: LIDOCAINE
     Indication: ANAESTHESIA
     Route: 047
     Dates: start: 20070504, end: 20070504
  10. POVIDONE-IODINE. [Suspect]
     Active Substance: POVIDONE-IODINE
     Indication: CATARACT OPERATION
     Route: 047
     Dates: start: 20070501, end: 20070501
  11. VANCOMYCIN [Suspect]
     Active Substance: VANCOMYCIN
     Indication: CATARACT OPERATION
     Route: 047
     Dates: start: 20070501, end: 20070501

REACTIONS (1)
  - Toxic anterior segment syndrome [Recovering/Resolving]

NARRATIVE: CASE EVENT DATE: 20070510
